FAERS Safety Report 7365847-0 (Version None)
Quarter: 2011Q1

REPORT INFORMATION
  Report Type: 
  Country: None (occurrence: None)
  Receive Date: 20110316
  Receipt Date: 20110316
  Transmission Date: 20110831
  Serious: Yes (Other)
  Sender: FDA-Public Use
  Company Number: None

PATIENT
  Sex: Female
  Weight: 84.369 kg

DRUGS (6)
  1. ASCORBIC ACID [Concomitant]
  2. ARIMIDEX [Suspect]
     Indication: BREAST CANCER STAGE III
     Dosage: 1MG DAILY PO
     Route: 048
     Dates: start: 20101111, end: 20110217
  3. AVALIDE [Concomitant]
  4. IBUPROPHIN [Concomitant]
  5. HERCEPTIN [Concomitant]
  6. MULTI-VITAMINS [Concomitant]

REACTIONS (5)
  - OEDEMA PERIPHERAL [None]
  - PAIN IN EXTREMITY [None]
  - JOINT SWELLING [None]
  - ACTIVITIES OF DAILY LIVING IMPAIRED [None]
  - MUSCULOSKELETAL STIFFNESS [None]
